FAERS Safety Report 7715124-0 (Version None)
Quarter: 2011Q3

REPORT INFORMATION
  Report Type: 
  Country: None (occurrence: None)
  Receive Date: 20110829
  Receipt Date: 20110817
  Transmission Date: 20111222
  Serious: Yes (Other)
  Sender: FDA-Public Use
  Company Number: PHEH2011US01912

PATIENT
  Sex: Female

DRUGS (2)
  1. KOMBIGLYZE XR [Suspect]
     Dosage: 1 DF, BID
  2. FEMARA [Suspect]
     Dosage: 2.5 MG, QD

REACTIONS (5)
  - SOMNOLENCE [None]
  - HYPERHIDROSIS [None]
  - BLOOD GLUCOSE INCREASED [None]
  - HEADACHE [None]
  - FEELING HOT [None]
